FAERS Safety Report 21105775 (Version 1)
Quarter: 2022Q3

REPORT INFORMATION
  Report Type: Spontaneous
  Country: GB (occurrence: GB)
  Receive Date: 20220720
  Receipt Date: 20220720
  Transmission Date: 20221027
  Serious: Yes (Disabling)
  Sender: FDA-Public Use
  Company Number: None

PATIENT
  Age: 62 Year
  Sex: Female

DRUGS (1)
  1. PAXLOVID [Suspect]
     Active Substance: NIRMATRELVIR\RITONAVIR
     Indication: Coronavirus infection
     Dosage: UNK
     Dates: start: 20220712

REACTIONS (2)
  - Groin pain [Not Recovered/Not Resolved]
  - Movement disorder [Unknown]

NARRATIVE: CASE EVENT DATE: 20220715
